FAERS Safety Report 9338723 (Version 2)
Quarter: 2013Q2

REPORT INFORMATION
  Report Type: Spontaneous
  Country: IT (occurrence: IT)
  Receive Date: 20130610
  Receipt Date: 20130611
  Transmission Date: 20140414
  Serious: No
  Sender: FDA-Public Use
  Company Number: IT-ACCORD-017941

PATIENT
  Age: 70 Year
  Sex: Female

DRUGS (1)
  1. ANASTROZOLE [Suspect]
     Indication: BREAST CANCER
     Route: 048
     Dates: start: 20130101, end: 20130130

REACTIONS (2)
  - Pain in extremity [Recovering/Resolving]
  - Skin exfoliation [Recovering/Resolving]
